FAERS Safety Report 11832430 (Version 10)
Quarter: 2016Q2

REPORT INFORMATION
  Report Type: Spontaneous
  Country: US (occurrence: US)
  Receive Date: 20151214
  Receipt Date: 20160616
  Transmission Date: 20160815
  Serious: Yes (Hospitalization)
  Sender: FDA-Public Use
  Company Number: US-PFIZER INC-2015404828

PATIENT
  Age: 85 Year
  Sex: Female
  Weight: 61 kg

DRUGS (5)
  1. IBRANCE [Suspect]
     Active Substance: PALBOCICLIB
     Dosage: 75 MG, CYCLIC (DAY 1-14 Q 21 DAYS)
     Route: 048
  2. IBRANCE [Suspect]
     Active Substance: PALBOCICLIB
     Dosage: 75 MG, CYCLIC (DAY 1-14 Q 21 DAYS)
     Route: 048
  3. COUMADIN [Concomitant]
     Active Substance: WARFARIN SODIUM
     Dosage: UNK
  4. IBRANCE [Suspect]
     Active Substance: PALBOCICLIB
     Indication: BREAST CANCER METASTATIC
     Dosage: 125 MG CAPSULES CYCLIC, DAY 1-21,  EVERY 28 DAYS
     Route: 048
     Dates: start: 20151103
  5. IBRANCE [Suspect]
     Active Substance: PALBOCICLIB
     Dosage: 75 MG, CYCLIC (DAY 1-21Q 28 DAYS)
     Route: 048
     Dates: start: 20151105, end: 20160202

REACTIONS (25)
  - Vomiting [Unknown]
  - Disease progression [Unknown]
  - Gingival pruritus [Unknown]
  - Skin lesion [Unknown]
  - Dizziness [Unknown]
  - White blood cell count decreased [Recovered/Resolved]
  - Breast cancer metastatic [Unknown]
  - Musculoskeletal stiffness [Unknown]
  - Palpitations [Unknown]
  - Diarrhoea [Unknown]
  - Fatigue [Not Recovered/Not Resolved]
  - Lip pain [Unknown]
  - Arthritis [Unknown]
  - Arthralgia [Unknown]
  - Neck pain [Unknown]
  - Dyspnoea [Recovering/Resolving]
  - Pain in extremity [Unknown]
  - Urinary tract infection [Recovered/Resolved]
  - Noninfective gingivitis [Unknown]
  - Malaise [Unknown]
  - Dehydration [Unknown]
  - International normalised ratio abnormal [Unknown]
  - Nausea [Recovered/Resolved]
  - Constipation [Unknown]
  - Headache [Unknown]

NARRATIVE: CASE EVENT DATE: 2015
